FAERS Safety Report 4639229-6 (Version None)
Quarter: 2005Q2

REPORT INFORMATION
  Report Type: 
  Country: None (occurrence: None)
  Receive Date: 20050418
  Receipt Date: 20050404
  Transmission Date: 20051028
  Serious: Yes (Hospitalization, Other)
  Sender: FDA-Public Use
  Company Number: ID-2005-004735

PATIENT
  Age: 26 Year
  Sex: Female
  Weight: 50 kg

DRUGS (1)
  1. ULTRAVIST 370 [Suspect]
     Indication: UROGRAPHY
     Dosage: 100 ML, 1 DOSE, INTRAVENOUS
     Route: 042
     Dates: start: 20050328, end: 20050328

REACTIONS (4)
  - FAECAL INCONTINENCE [None]
  - METABOLIC ACIDOSIS [None]
  - PULSE ABSENT [None]
  - SHOCK [None]
